FAERS Safety Report 6589057-X (Version None)
Quarter: 2010Q1

REPORT INFORMATION
  Report Type: 
  Country: None (occurrence: None)
  Receive Date: 20100212
  Receipt Date: 20100126
  Transmission Date: 20100710
  Serious: Yes (Disabling)
  Sender: FDA-Public Use
  Company Number: FR-2010-0025

PATIENT
  Age: 64 Year
  Sex: Female
  Weight: 73 kg

DRUGS (11)
  1. NAVELBINE [Suspect]
     Indication: BREAST CANCER METASTATIC
     Dosage: 40 MG IV
     Route: 042
     Dates: start: 20090922, end: 20091217
  2. NAVELBINE [Suspect]
     Indication: BREAST CANCER METASTATIC
     Dates: start: 20091224
  3. ZOMETA [Suspect]
     Indication: METASTASES TO BONE
     Dosage: 4 MG IV
     Route: 042
     Dates: end: 20091217
  4. XELODA [Suspect]
     Indication: BREAST CANCER METASTATIC
     Dosage: 1650 MG BID PO
     Route: 048
     Dates: start: 20090923, end: 20091218
  5. DUROGESIC             . MFR: NOT SPECIFIED [Concomitant]
  6. PRIMPERAN            . MFR: NOT SPECIFIED [Concomitant]
  7. ARANESP [Concomitant]
  8. METFORMIN HCL [Concomitant]
  9. ASPIRINE               . MFR: NOT SPECIFIED [Concomitant]
  10. TOFRANIL               . MFR: NOT SPECIFIED [Concomitant]
  11. ZOLPIDEM [Concomitant]

REACTIONS (2)
  - BLINDNESS UNILATERAL [None]
  - RETINAL VEIN OCCLUSION [None]
